FAERS Safety Report 9781352 (Version 1)
Quarter: 2013Q4

REPORT INFORMATION
  Report Type: Spontaneous
  Country: US (occurrence: None)
  Receive Date: 20131223
  Receipt Date: 20131223
  Transmission Date: 20140711
  Serious: Yes (Other)
  Sender: FDA-Public Use
  Company Number: None

PATIENT
  Age: 58 Year
  Sex: Female
  Weight: 85 kg

DRUGS (1)
  1. TICAGRELOR [Suspect]
     Indication: MYOCARDIAL INFARCTION
     Dosage: 1 PILL
     Route: 048

REACTIONS (1)
  - Dyspnoea [None]
